FAERS Safety Report 5528765-6 (Version None)
Quarter: 2007Q4

REPORT INFORMATION
  Report Type: 
  Country: None (occurrence: None)
  Receive Date: 20071129
  Receipt Date: 20071119
  Transmission Date: 20080405
  Serious: Yes (Hospitalization)
  Sender: FDA-Public Use
  Company Number: GR-TYCO HEALTHCARE/MALLINCKRODT-T200701447

PATIENT

DRUGS (6)
  1. OPTIRAY 300 [Suspect]
     Indication: ARTERIOGRAM
     Dosage: 100 ML, SINGLE
     Route: 042
     Dates: start: 20071115, end: 20071115
  2. PLAVIX [Concomitant]
     Dosage: UNK, QD
     Dates: end: 20071113
  3. GLUCOPHAGE [Concomitant]
     Dosage: UNK, QD
     Dates: end: 20071113
  4. CRESTOR [Concomitant]
  5. LORAZEPAM [Concomitant]
  6. AMITRIPTLINE HCL [Concomitant]

REACTIONS (4)
  - AMNESIA [None]
  - DYSARTHRIA [None]
  - HYPERTENSION [None]
  - VISION BLURRED [None]
